FAERS Safety Report 8146996-6 (Version None)
Quarter: 2012Q1

REPORT INFORMATION
  Report Type: 
  Country: None (occurrence: None)
  Receive Date: 20120217
  Receipt Date: 20120208
  Transmission Date: 20120608
  Serious: Yes (Other)
  Sender: FDA-Public Use
  Company Number: US-ASTRAZENECA-2012SE02798

PATIENT
  Age: 53 Year
  Sex: Female

DRUGS (3)
  1. ANTISEIZURE MEDICATION [Suspect]
     Indication: CONVULSION
     Route: 065
  2. NEXIUM [Suspect]
     Dosage: QD
     Route: 048
  3. NEXIUM [Suspect]
     Dosage: BID
     Route: 048

REACTIONS (4)
  - GASTROOESOPHAGEAL REFLUX DISEASE [None]
  - CONVULSION [None]
  - DYSPEPSIA [None]
  - DRUG PRESCRIBING ERROR [None]
